FAERS Safety Report 7716341-6 (Version None)
Quarter: 2011Q3

REPORT INFORMATION
  Report Type: 
  Country: None (occurrence: None)
  Receive Date: 20110829
  Receipt Date: 20110819
  Transmission Date: 20111222
  Serious: Yes (Other)
  Sender: FDA-Public Use
  Company Number: PHHY2010US12095

PATIENT
  Sex: Male

DRUGS (2)
  1. GLEEVEC [Suspect]
     Indication: CHRONIC MYELOID LEUKAEMIA
     Dosage: 400 MG
     Route: 048
     Dates: start: 20070815
  2. GLEEVEC [Suspect]
     Indication: GASTRIC CANCER

REACTIONS (8)
  - CHEST PAIN [None]
  - HEART RATE INCREASED [None]
  - HAEMORRHAGE [None]
  - ANXIETY [None]
  - ABDOMINAL PAIN UPPER [None]
  - CONTUSION [None]
  - FEELING HOT [None]
  - GASTROOESOPHAGEAL REFLUX DISEASE [None]
